FAERS Safety Report 6579044-X (Version None)
Quarter: 2010Q1

REPORT INFORMATION
  Report Type: 
  Country: None (occurrence: None)
  Receive Date: 20100203
  Receipt Date: 20100119
  Transmission Date: 20100710
  Serious: Yes (Other)
  Sender: FDA-Public Use
  Company Number: 2010SA005734

PATIENT
  Age: 51 Year
  Sex: Male

DRUGS (4)
  1. FLUDARABINE PHOSPHATE [Suspect]
     Indication: STEM CELL TRANSPLANT
     Dosage: 30 MILLIGRAM(S) SQUARE METER; DAILY; ORAL
     Route: 048
  2. CAMPATH [Suspect]
     Indication: STEM CELL TRANSPLANT
     Dosage: 20 MILLIGRAM(S)
  3. BUSULFAN (BUSULFAN) [Suspect]
     Indication: STEM CELL TRANSPLANT
     Dosage: 3.2 MILLIGRAM(S)/KILOGRAM
  4. CYCLOSPORINE [Concomitant]

REACTIONS (14)
  - BRONCHIAL NEOPLASM [None]
  - CONJUNCTIVITIS [None]
  - CREPITATIONS [None]
  - GRAFT VERSUS HOST DISEASE [None]
  - HAEMOGLOBIN DECREASED [None]
  - LUNG CONSOLIDATION [None]
  - NEUTROPHIL COUNT INCREASED [None]
  - OROPHARYNGEAL PAIN [None]
  - PEMPHIGOID [None]
  - PLATELET COUNT DECREASED [None]
  - PRODUCTIVE COUGH [None]
  - PURULENCE [None]
  - UPPER RESPIRATORY TRACT INFLAMMATION [None]
  - WEIGHT DECREASED [None]
